FAERS Safety Report 5363584-5 (Version None)
Quarter: 2007Q2

REPORT INFORMATION
  Report Type: 
  Country: None (occurrence: None)
  Receive Date: 20070620
  Receipt Date: 20070613
  Transmission Date: 20071010
  Serious: Yes (Death, Hospitalization, Disabling, Other)
  Sender: FDA-Public Use
  Company Number: A0655883A

PATIENT

DRUGS (1)
  1. ARIXTRA [Suspect]
     Route: 058

REACTIONS (2)
  - ADVERSE EVENT [None]
  - RETROPERITONEAL HAEMORRHAGE [None]
